FAERS Safety Report 14819183 (Version 1)
Quarter: 2018Q2

REPORT INFORMATION
  Report Type: Spontaneous
  Country: GB (occurrence: GB)
  Receive Date: 20180427
  Receipt Date: 20180427
  Transmission Date: 20180711
  Serious: Yes (Other)
  Sender: FDA-Public Use
  Company Number: GB-AUROBINDO-AUR-APL-2018-022531

PATIENT
  Sex: Female

DRUGS (1)
  1. DULOXETINE. [Suspect]
     Active Substance: DULOXETINE
     Indication: PRODUCT USED FOR UNKNOWN INDICATION
     Dosage: 60 MILLIGRAM
     Route: 065

REACTIONS (7)
  - Malaise [Unknown]
  - Nightmare [Unknown]
  - Dizziness [Unknown]
  - Feeling abnormal [Unknown]
  - Diarrhoea [Unknown]
  - Apparent death [Unknown]
  - Gait inability [Unknown]

NARRATIVE: CASE EVENT DATE: 2018
